FAERS Safety Report 8798614 (Version 1)
Quarter: 2012Q4

REPORT INFORMATION
  Report Type: 
  Country: GB (occurrence: GB)
  Receive Date: 20120920
  Receipt Date: 20120920
  Transmission Date: 20130627
  Serious: Yes (Disabling)
  Sender: FDA-Public Use
  Company Number: GB-TEVA-358060ISR

PATIENT
  Age: 36 Year

DRUGS (2)
  1. METRONIDAZOLE [Suspect]
     Indication: DENTAL CARE
     Route: 048
  2. BECONASE AQUEOUS [Concomitant]
     Dosage: 50 micrograms/dose
     Route: 045

REACTIONS (4)
  - Psychotic disorder [Recovered/Resolved]
  - Optic neuritis [Not Recovered/Not Resolved]
  - Tinnitus [Not Recovered/Not Resolved]
  - Mental disorder [Recovered/Resolved]
